FAERS Safety Report 5566747-9 (Version None)
Quarter: 2007Q4

REPORT INFORMATION
  Report Type: 
  Country: None (occurrence: None)
  Receive Date: 20071219
  Receipt Date: 20071212
  Transmission Date: 20080405
  Serious: No
  Sender: FDA-Public Use
  Company Number: US-ELI_LILLY_AND_COMPANY-US200712002475

PATIENT
  Age: 45 Year
  Sex: Female

DRUGS (7)
  1. CYMBALTA [Suspect]
     Indication: DEPRESSION
     Dosage: 80 MG, DAILY (1/D)
     Dates: start: 20070101
  2. CLONAZEPAM [Concomitant]
  3. METFORMIN HCL [Concomitant]
  4. SEROQUEL [Concomitant]
  5. LISINOPRIL [Concomitant]
  6. GLIMEPIRIDE [Concomitant]
  7. LOVASTATIN [Concomitant]

REACTIONS (1)
  - HEPATIC ENZYME INCREASED [None]
